FAERS Safety Report 8013735-9 (Version None)
Quarter: 2011Q4

REPORT INFORMATION
  Report Type: 
  Country: None (occurrence: None)
  Receive Date: 20111229
  Receipt Date: 20111219
  Transmission Date: 20120403
  Serious: Yes (Other)
  Sender: FDA-Public Use
  Company Number: JP-ELI_LILLY_AND_COMPANY-JP201110003702

PATIENT
  Sex: Female
  Weight: 32.4 kg

DRUGS (8)
  1. ASPARA-CA [Concomitant]
     Dosage: 200 MG, TID
     Route: 048
  2. BERIZYM [Concomitant]
     Dosage: 1 G, TID
     Route: 048
  3. FORTEO [Suspect]
     Indication: OSTEOPOROSIS
     Dosage: 20 UG, QD
     Route: 058
     Dates: start: 20110822, end: 20111012
  4. MEDROL [Concomitant]
     Dosage: 8 MG, QD
     Route: 048
  5. LANSOPRAZOLE [Concomitant]
     Indication: GASTROOESOPHAGEAL REFLUX DISEASE
     Dosage: 15 MG, QD
     Route: 048
  6. SPIROPENT [Concomitant]
     Dosage: 20 UG, BID
     Route: 048
  7. PERSANTIN [Concomitant]
     Dosage: 100 MG, TID
     Route: 048
  8. LASIX [Concomitant]
     Dosage: 40 MG, QD
     Route: 048

REACTIONS (1)
  - DIFFUSE LARGE B-CELL LYMPHOMA [None]
